FAERS Safety Report 15056576 (Version 2)
Quarter: 2018Q3

REPORT INFORMATION
  Report Type: Report from Study
  Country: None (occurrence: US)
  Receive Date: 20180623
  Receipt Date: 20180801
  Transmission Date: 20181010
  Serious: Yes (Other)
  Sender: FDA-Public Use
  Company Number: US-ABBVIE-18K-163-2395239-00

PATIENT
  Sex: Female

DRUGS (3)
  1. HUMIRA [Suspect]
     Active Substance: ADALIMUMAB
     Route: 058
  2. HUMIRA [Suspect]
     Active Substance: ADALIMUMAB
     Indication: RHEUMATOID ARTHRITIS
     Route: 058
  3. METHOTREXATE. [Suspect]
     Active Substance: METHOTREXATE
     Indication: PRODUCT USED FOR UNKNOWN INDICATION
     Route: 065

REACTIONS (9)
  - Post procedural contusion [Not Recovered/Not Resolved]
  - Device issue [Not Recovered/Not Resolved]
  - Post procedural infection [Not Recovered/Not Resolved]
  - Adverse drug reaction [Recovered/Resolved]
  - Injection site pain [Not Recovered/Not Resolved]
  - Hepatic enzyme increased [Recovering/Resolving]
  - Osteoarthritis [Recovering/Resolving]
  - Drug hypersensitivity [Recovered/Resolved]
  - Post procedural swelling [Not Recovered/Not Resolved]
